FAERS Safety Report 13200304 (Version 2)
Quarter: 2017Q1

REPORT INFORMATION
  Report Type: Report from Study
  Country: US (occurrence: US)
  Receive Date: 20170208
  Receipt Date: 20170306
  Transmission Date: 20170428
  Serious: Yes (Death, Hospitalization)
  Sender: FDA-Public Use
  Company Number: US-B.I. PHARMACEUTICALS,INC./RIDGEFIELD-2016-BI-23564BP

PATIENT
  Sex: Male

DRUGS (1)
  1. OFEV [Suspect]
     Active Substance: NINTEDANIB
     Indication: IDIOPATHIC PULMONARY FIBROSIS
     Route: 048
     Dates: start: 20160128

REACTIONS (9)
  - Cough [Unknown]
  - Productive cough [Unknown]
  - Blood cholesterol increased [Unknown]
  - Sepsis [Unknown]
  - Dyspnoea [Unknown]
  - Asthenia [Unknown]
  - Neoplasm malignant [Fatal]
  - Nasopharyngeal cancer [Unknown]
  - Fatigue [Unknown]
